FAERS Safety Report 13389770 (Version 1)
Quarter: 2017Q1

REPORT INFORMATION
  Report Type: Spontaneous
  Country: US (occurrence: US)
  Receive Date: 20170331
  Receipt Date: 20170331
  Transmission Date: 20170429
  Serious: No
  Sender: FDA-Public Use
  Company Number: US-STRIDES ARCOLAB LIMITED-2016SP016624

PATIENT

DRUGS (4)
  1. TRAUMEEL                           /06048201/ [Concomitant]
     Indication: PAIN IN EXTREMITY
     Dosage: UNK
     Route: 061
  2. IBUPROFEN. [Suspect]
     Active Substance: IBUPROFEN
     Indication: PAIN IN EXTREMITY
     Dosage: 600 MG/DAY
  3. TRAUMEEL                           /06048201/ [Concomitant]
     Dosage: UNK
     Route: 048
  4. ANTIBIOTICS [Concomitant]
     Active Substance: UNSPECIFIED INGREDIENT
     Indication: CELLULITIS
     Dosage: UNK
     Route: 042

REACTIONS (1)
  - Drug ineffective [Unknown]
